FAERS Safety Report 26067780 (Version 2)
Quarter: 2025Q4

REPORT INFORMATION
  Report Type: Spontaneous
  Country: US (occurrence: US)
  Receive Date: 20251120
  Receipt Date: 20251127
  Transmission Date: 20260117
  Serious: No
  Sender: LEO PHARM
  Company Number: US-LEO Pharma-384189

PATIENT
  Age: 47 Year
  Sex: Female
  Weight: 66 kg

DRUGS (4)
  1. ADBRY [Suspect]
     Active Substance: TRALOKINUMAB-LDRM
     Indication: Product used for unknown indication
  2. DUPIXENT [Suspect]
     Active Substance: DUPILUMAB
     Indication: Dermatitis atopic
  3. EUCRISA [Suspect]
     Active Substance: CRISABOROLE
     Indication: Product used for unknown indication
  4. EBGLYSS [Suspect]
     Active Substance: LEBRIKIZUMAB-LBKZ
     Indication: Product used for unknown indication

REACTIONS (2)
  - Drug intolerance [Unknown]
  - Treatment failure [Unknown]
